FAERS Safety Report 6102983-0 (Version None)
Quarter: 2009Q1

REPORT INFORMATION
  Report Type: 
  Country: None (occurrence: None)
  Receive Date: 20090305
  Receipt Date: 20090224
  Transmission Date: 20090719
  Serious: Yes (Hospitalization, Other)
  Sender: FDA-Public Use
  Company Number: PHHY2009FR06962

PATIENT
  Age: 63 Year
  Sex: Male

DRUGS (8)
  1. TEGRETOL [Suspect]
     Indication: BIPOLAR DISORDER
     Dosage: 1 DF, BID
     Route: 048
     Dates: start: 19930101
  2. ZYPREXA [Suspect]
     Dosage: 5 MG/DAY
  3. ZYPREXA [Suspect]
     Dosage: 10 MG/DAY
  4. IMOVANE [Suspect]
     Dosage: 1 DF DAILY
  5. IMOVANE [Suspect]
     Dosage: 2 DF
  6. PRAZEPAM [Concomitant]
  7. SELOKEN [Concomitant]
     Indication: HYPERTENSION
     Dosage: UNK
  8. APROVEL [Concomitant]
     Indication: HYPERTENSION
     Dosage: UNK

REACTIONS (4)
  - BALANCE DISORDER [None]
  - DIPLOPIA [None]
  - MENIERE'S DISEASE [None]
  - VERTIGO [None]
